FAERS Safety Report 20771812 (Version 1)
Quarter: 2022Q2

REPORT INFORMATION
  Report Type: Spontaneous
  Country: US (occurrence: US)
  Receive Date: 20220430
  Receipt Date: 20220430
  Transmission Date: 20220721
  Serious: Yes (Other)
  Sender: FDA-Public Use
  Company Number: US-drreddys-LIT/USA/22/0149454

PATIENT
  Age: 8 Year
  Sex: Female

DRUGS (14)
  1. TACROLIMUS [Suspect]
     Active Substance: TACROLIMUS
     Indication: Interstitial lung disease
  2. TACROLIMUS [Suspect]
     Active Substance: TACROLIMUS
     Dosage: DAILY TACROLIMUS (GOAL SERUM LEVEL OF 10?15 NG/ML),
  3. CYCLOPHOSPHAMIDE [Suspect]
     Active Substance: CYCLOPHOSPHAMIDE
     Indication: Interstitial lung disease
     Dosage: 15 MG/KG DAILY
  4. RITUXIMAB [Suspect]
     Active Substance: RITUXIMAB
     Indication: Interstitial lung disease
     Dosage: 375 MG/M2 WEEKLY
  5. RITUXIMAB [Suspect]
     Active Substance: RITUXIMAB
     Dosage: EVERY OTHER WEEK
  6. HUMAN IMMUNOGLOBULIN G [Suspect]
     Active Substance: HUMAN IMMUNOGLOBULIN G
     Indication: Interstitial lung disease
     Route: 042
  7. HUMAN IMMUNOGLOBULIN G [Suspect]
     Active Substance: HUMAN IMMUNOGLOBULIN G
     Dosage: 10 G/DOSE
     Route: 042
  8. CYTOXAN [Suspect]
     Active Substance: CYCLOPHOSPHAMIDE
     Indication: Interstitial lung disease
     Dosage: WEEKLY
  9. METHOTREXATE [Concomitant]
     Active Substance: METHOTREXATE
     Indication: Dermatomyositis
  10. METHYLPREDNISOLONE [Concomitant]
     Active Substance: METHYLPREDNISOLONE
     Indication: Dermatomyositis
     Dosage: 30 MG/KG WAS STARTED 15 DAYS AFTER THE INITIAL DIAGNOSIS (DAY 1 OF THE HOSPITALISATION)
  11. METHYLPREDNISOLONE [Concomitant]
     Active Substance: METHYLPREDNISOLONE
     Dosage: STARTED RECEIVING HIGH-DOSE METHYLPREDNISOLONE 30 MG/KG ON DAY 4 OF THE HOSPITALISATION
  12. OXYGEN [Concomitant]
     Active Substance: OXYGEN
     Indication: Pneumonia aspiration
     Dosage: 10 LPM
  13. VANCOMYCIN [Concomitant]
     Active Substance: VANCOMYCIN
     Indication: Pneumonia aspiration
  14. MEROPENEM [Concomitant]
     Active Substance: MEROPENEM
     Indication: Pneumonia aspiration

REACTIONS (2)
  - Disease progression [Not Recovered/Not Resolved]
  - Drug ineffective [Unknown]
